FAERS Safety Report 25993589 (Version 1)
Quarter: 2025Q4

REPORT INFORMATION
  Report Type: Spontaneous
  Country: US (occurrence: US)
  Receive Date: 20251104
  Receipt Date: 20251104
  Transmission Date: 20260118
  Serious: No
  Sender: ROCHE
  Company Number: US-ROCHE-10000422186

PATIENT
  Age: 16 Year
  Sex: Male

DRUGS (2)
  1. TENECTEPLASE [Suspect]
     Active Substance: TENECTEPLASE
     Indication: Ischaemic stroke
     Route: 065
  2. CITALOPRAM [Concomitant]
     Active Substance: CITALOPRAM

REACTIONS (2)
  - No adverse event [Unknown]
  - Off label use [Unknown]
